FAERS Safety Report 7755900-1 (Version None)
Quarter: 2011Q3

REPORT INFORMATION
  Report Type: 
  Country: None (occurrence: None)
  Receive Date: 20110908
  Receipt Date: 20110829
  Transmission Date: 20111222
  Serious: Yes (Life-Threatening)
  Sender: FDA-Public Use
  Company Number: 003-058

PATIENT
  Age: 20 Year
  Sex: Male

DRUGS (5)
  1. MORPHINE [Concomitant]
  2. DEMEROL [Concomitant]
  3. CROFAB [Suspect]
     Indication: SNAKE BITE
     Dosage: 4 VIALS X 1, 2 VIALS Q6H X 2
     Dates: start: 20110817
  4. CEFEPIME [Concomitant]
  5. LEVAQUIN [Concomitant]

REACTIONS (2)
  - RENAL FAILURE ACUTE [None]
  - INFECTED BITES [None]
